FAERS Safety Report 23986975 (Version 2)
Quarter: 2024Q3

REPORT INFORMATION
  Report Type: Spontaneous
  Country: CL (occurrence: CL)
  Receive Date: 20240618
  Receipt Date: 20240724
  Transmission Date: 20241016
  Serious: No
  Sender: PFIZER
  Company Number: CL-PFIZER INC-PV202400077139

PATIENT
  Age: 12 Year
  Sex: Male

DRUGS (1)
  1. GENOTROPIN [Suspect]
     Active Substance: SOMATROPIN
     Dosage: UNK

REACTIONS (2)
  - Wrong technique in device usage process [Unknown]
  - Device leakage [Unknown]
